FAERS Safety Report 5219559-X (Version None)
Quarter: 2007Q1

REPORT INFORMATION
  Report Type: 
  Country: None (occurrence: None)
  Receive Date: 20070124
  Receipt Date: 20070124
  Transmission Date: 20070707
  Serious: Yes (Hospitalization)
  Sender: FDA-Public Use
  Company Number: None

PATIENT
  Sex: Male
  Weight: 122 kg

DRUGS (8)
  1. IBUPROFEN [Suspect]
     Indication: BACK PAIN
     Dosage: 800MG PO QID
     Route: 048
     Dates: start: 20060920, end: 20060925
  2. DILTIAZEM (INWOOD) [Concomitant]
  3. FLUNISOLIDE [Concomitant]
  4. HYDROCHLOROTHIAZIDE [Concomitant]
  5. IPRATROPIUM BR/SPRAY AEROSOL [Concomitant]
  6. LEVALBUTEROL TART [Concomitant]
  7. TRAZODONE HCL [Concomitant]
  8. IBUPROFEN [Concomitant]

REACTIONS (4)
  - CARDIAC FAILURE CONGESTIVE [None]
  - CONDITION AGGRAVATED [None]
  - GASTRIC ULCER [None]
  - VOMITING [None]
